FAERS Safety Report 11003319 (Version 2)
Quarter: 2015Q2

REPORT INFORMATION
  Report Type: Report from Study
  Country: BE (occurrence: BE)
  Receive Date: 20150409
  Receipt Date: 20150624
  Transmission Date: 20150821
  Serious: Yes (Other)
  Sender: FDA-Public Use
  Company Number: BE-BEH-2015050148

PATIENT
  Sex: Female

DRUGS (1)
  1. HIZENTRA [Suspect]
     Active Substance: HUMAN IMMUNOGLOBULIN G
     Indication: PRODUCT USED FOR UNKNOWN INDICATION
     Dosage: 4G 8 G ALTERNATING; 1 WEEK 2X20 ML (2 ADMINISTRATIONS IN 1 WEEK) AND THE OTHER WEEK 1X20 ML
     Route: 058

REACTIONS (1)
  - Tooth abscess [Recovered/Resolved]
